FAERS Safety Report 15404087 (Version 1)
Quarter: 2018Q3

REPORT INFORMATION
  Report Type: Spontaneous
  Country: US (occurrence: US)
  Receive Date: 20180919
  Receipt Date: 20180919
  Transmission Date: 20181010
  Serious: No
  Sender: FDA-Public Use
  Company Number: US-AVADEL SPECIALTY PHARMACEUTICALS, LLC-2018AVA00266

PATIENT
  Age: 80 Year
  Sex: Male
  Weight: 68.03 kg

DRUGS (6)
  1. NOCTIVA [Suspect]
     Active Substance: DESMOPRESSIN ACETATE
     Indication: NOCTURIA
  2. LATANOPROST. [Concomitant]
     Active Substance: LATANOPROST
     Dosage: 1X/DAY, 1 DROP IN EACH EYE
  3. UNSPECIFIED PRODUCT(S)  FOR HIGH CHOLESTEROL [Concomitant]
  4. UNSPECIFIED PRODUCT(S)  FOR HEART [Concomitant]
  5. UNSPECIFIED PRODUCT(S) FOR BLOOD PRESSURE [Concomitant]
  6. NOCTIVA [Suspect]
     Active Substance: DESMOPRESSIN ACETATE
     Indication: HYPERTONIC BLADDER
     Dosage: 0.83 ?G, 1X/DAY 30 MINUTES BEFORE BED
     Route: 045
     Dates: start: 20180813, end: 20180819

REACTIONS (6)
  - Eye irritation [Recovered/Resolved]
  - Ocular discomfort [Recovered/Resolved]
  - Off label use [Recovered/Resolved]
  - Drug ineffective [Recovered/Resolved]
  - Nasal discomfort [Recovered/Resolved]
  - Lacrimation increased [Recovered/Resolved]

NARRATIVE: CASE EVENT DATE: 20180813
